FAERS Safety Report 14063747 (Version 3)
Quarter: 2018Q1

REPORT INFORMATION
  Report Type: Spontaneous
  Country: AU (occurrence: AU)
  Receive Date: 20171009
  Receipt Date: 20180308
  Transmission Date: 20180508
  Serious: Yes (Death, Other)
  Sender: FDA-Public Use
  Company Number: PHHY2017AU147083

PATIENT
  Age: 67 Year
  Sex: Male

DRUGS (9)
  1. IDARUBICIN [Suspect]
     Active Substance: IDARUBICIN
     Indication: ERYTHROLEUKAEMIA
     Dosage: 12 MG/M2, QD (DAY 1 TO 3)
     Route: 042
     Dates: start: 20151116
  2. AZACITIDINE. [Suspect]
     Active Substance: AZACITIDINE
     Indication: ERYTHROLEUKAEMIA
     Dosage: 75 MG/M2, QD (DAY 1 TO 7)
     Route: 065
     Dates: start: 20160111
  3. CYTARABINE. [Suspect]
     Active Substance: CYTARABINE
     Indication: ERYTHROLEUKAEMIA
     Dosage: 100 MG/M2, QD (DAY 1 TO 7)
     Route: 042
     Dates: start: 20151116
  4. POSACONAZOLE [Suspect]
     Active Substance: POSACONAZOLE
     Dosage: 300 MG, UNK
     Route: 065
     Dates: start: 20160531
  5. AMSACRINE [Suspect]
     Active Substance: AMSACRINE
     Indication: ERYTHROLEUKAEMIA
     Dosage: 100 MG/M2, QD (DAY 1 TO 3)
     Route: 042
  6. FLUDARABINE [Suspect]
     Active Substance: FLUDARABINE PHOSPHATE
     Indication: ERYTHROLEUKAEMIA
     Dosage: 30 MG/M2, QD (DAY 1 TO 5)
     Route: 042
     Dates: start: 20160531
  7. CYTARABINE. [Suspect]
     Active Substance: CYTARABINE
     Dosage: 2000 MG/M2, QD (DAY 1 TO 5)
     Route: 042
     Dates: start: 20160531
  8. G-CSF [Suspect]
     Active Substance: GRANULOCYTE COLONY-STIMULATING FACTOR NOS
     Indication: PRODUCT USED FOR UNKNOWN INDICATION
     Dosage: 300 UG, QD (DAY 0 TO 6)
     Route: 058
     Dates: start: 20160531
  9. POSACONAZOLE [Suspect]
     Active Substance: POSACONAZOLE
     Indication: PRODUCT USED FOR UNKNOWN INDICATION
     Dosage: 300 MG, QD
     Route: 065

REACTIONS (2)
  - Acute myeloid leukaemia recurrent [Not Recovered/Not Resolved]
  - Death [Fatal]

NARRATIVE: CASE EVENT DATE: 20170308
